FAERS Safety Report 7706910-1 (Version None)
Quarter: 2011Q3

REPORT INFORMATION
  Report Type: 
  Country: None (occurrence: None)
  Receive Date: 20110824
  Receipt Date: 20110818
  Transmission Date: 20111222
  Serious: Yes (Hospitalization)
  Sender: FDA-Public Use
  Company Number: US-GLAXOSMITHKLINE-A0941117A

PATIENT
  Age: 84 Year
  Sex: Male
  Weight: 80.2 kg

DRUGS (2)
  1. RADIATION THERAPY [Suspect]
     Indication: HEAD AND NECK CANCER
  2. LAPATINIB [Suspect]
     Indication: HEAD AND NECK CANCER
     Dosage: 1500MG PER DAY
     Route: 048
     Dates: start: 20110706

REACTIONS (1)
  - HYPONATRAEMIA [None]
